FAERS Safety Report 9886949 (Version 1)
Quarter: 2014Q1

REPORT INFORMATION
  Report Type: Spontaneous
  Country: SG (occurrence: SG)
  Receive Date: 20140211
  Receipt Date: 20140211
  Transmission Date: 20141002
  Serious: Yes (Death, Hospitalization, Other)
  Sender: FDA-Public Use
  Company Number: SG-009507513-1402SGP003109

PATIENT
  Age: 50 Year
  Sex: Male

DRUGS (2)
  1. SIMVASTATIN [Suspect]
     Indication: HYPERLIPIDAEMIA
     Dosage: DAILY
     Route: 048
  2. AMLODIPINE [Concomitant]
     Indication: HYPERLIPIDAEMIA
     Dosage: DAILY

REACTIONS (1)
  - Rhabdomyolysis [Fatal]
